FAERS Safety Report 4511247-8 (Version None)
Quarter: 2004Q4

REPORT INFORMATION
  Report Type: 
  Country: None (occurrence: None)
  Receive Date: 20041122
  Receipt Date: 20041122
  Transmission Date: 20050328
  Serious: No
  Sender: FDA-Public Use
  Company Number: None

PATIENT
  Sex: Female
  Weight: 71.6683 kg

DRUGS (5)
  1. ADVAIR DISKUS 100/50 [Suspect]
     Indication: ASTHMA
     Dosage: 1 PUFF  TWICE DAILY  RESPIRATORY
     Route: 055
     Dates: start: 20040402, end: 20041119
  2. ADVAIR DISKUS 100/50 [Suspect]
     Indication: COUGH
     Dosage: 1 PUFF  TWICE DAILY  RESPIRATORY
     Route: 055
     Dates: start: 20040402, end: 20041119
  3. NEXIUM [Concomitant]
  4. ZYRTEC-D 12 HOUR [Concomitant]
  5. RINOCORTAQUA [Concomitant]

REACTIONS (2)
  - DYSPHONIA [None]
  - GASTROOESOPHAGEAL REFLUX DISEASE [None]
